FAERS Safety Report 6210811-8 (Version None)
Quarter: 2009Q2

REPORT INFORMATION
  Report Type: 
  Country: None (occurrence: None)
  Receive Date: 20090601
  Receipt Date: 20090518
  Transmission Date: 20091009
  Serious: Yes (Hospitalization, Other)
  Sender: FDA-Public Use
  Company Number: GB-MYLANLABS-2009S1008843

PATIENT
  Sex: Female

DRUGS (4)
  1. MIRTAZAPINE [Suspect]
     Indication: DEPRESSION
     Route: 048
     Dates: end: 20090511
  2. CYCLIZINE [Suspect]
     Indication: NAUSEA
     Route: 048
     Dates: start: 20090511, end: 20090511
  3. CYCLIZINE [Suspect]
     Indication: VOMITING
     Route: 048
     Dates: start: 20090511, end: 20090511
  4. BUSCOPAN [Concomitant]
     Indication: NAUSEA

REACTIONS (4)
  - DYSKINESIA [None]
  - NAUSEA [None]
  - RESTLESS LEGS SYNDROME [None]
  - VOMITING [None]
